FAERS Safety Report 6721604-7 (Version None)
Quarter: 2010Q2

REPORT INFORMATION
  Report Type: 
  Country: None (occurrence: None)
  Receive Date: 20100512
  Receipt Date: 20100429
  Transmission Date: 20101027
  Serious: Yes (Other)
  Sender: FDA-Public Use
  Company Number: PHHY2010CA26021

PATIENT
  Sex: Male

DRUGS (4)
  1. CLOZARIL [Suspect]
     Indication: TARDIVE DYSKINESIA
     Dosage: 200 MG, HS
     Dates: start: 20100330, end: 20100420
  2. CLOZARIL [Suspect]
     Indication: SCHIZOPHRENIA
  3. COCAINE [Suspect]
  4. ALCOHOL [Concomitant]

REACTIONS (7)
  - ACUTE CORONARY SYNDROME [None]
  - BLOOD CREATINE PHOSPHOKINASE INCREASED [None]
  - BLOOD CREATINE PHOSPHOKINASE MB INCREASED [None]
  - CARDIAC DISORDER [None]
  - CHEST PAIN [None]
  - TACHYCARDIA [None]
  - TROPONIN T INCREASED [None]
